FAERS Safety Report 16123597 (Version 1)
Quarter: 2019Q1

REPORT INFORMATION
  Report Type: Spontaneous
  Country: FR (occurrence: FR)
  Receive Date: 20190327
  Receipt Date: 20190327
  Transmission Date: 20190418
  Serious: Yes (Hospitalization)
  Sender: FDA-Public Use
  Company Number: FR-PFIZER INC-2019123825

PATIENT
  Age: 32 Year
  Sex: Female

DRUGS (2)
  1. XANAX [Suspect]
     Active Substance: ALPRAZOLAM
     Indication: INTENTIONAL OVERDOSE
     Dosage: 7.5 MG, SINGLE
     Route: 048
     Dates: start: 20190211, end: 20190211
  2. KETOPROFEN. [Suspect]
     Active Substance: KETOPROFEN
     Indication: INTENTIONAL OVERDOSE
     Dosage: 200 MG, SINGLE
     Route: 048
     Dates: start: 20190211, end: 20190211

REACTIONS (3)
  - Poisoning deliberate [Recovered/Resolved]
  - Intentional overdose [Recovered/Resolved]
  - Somnolence [Recovered/Resolved]

NARRATIVE: CASE EVENT DATE: 20190211
